FAERS Safety Report 15271127 (Version 1)
Quarter: 2018Q3

REPORT INFORMATION
  Report Type: Spontaneous
  Country: US (occurrence: US)
  Receive Date: 20180813
  Receipt Date: 20180813
  Transmission Date: 20181010
  Serious: No
  Sender: FDA-Public Use
  Company Number: US-BAYER-2018-149876

PATIENT
  Age: 66 Year

DRUGS (1)
  1. NEXAVAR [Suspect]
     Active Substance: SORAFENIB
     Dosage: 400MG IN MORNING, 200MG IN EVENING
     Route: 048

REACTIONS (6)
  - Dry skin [None]
  - Erythema [None]
  - Musculoskeletal stiffness [None]
  - Off label use [None]
  - Pain in extremity [None]
  - Palmar-plantar erythrodysaesthesia syndrome [Unknown]
